FAERS Safety Report 5190310-5 (Version None)
Quarter: 2006Q4

REPORT INFORMATION
  Report Type: 
  Country: None (occurrence: None)
  Receive Date: 20061222
  Receipt Date: 20061128
  Transmission Date: 20070319
  Serious: No
  Sender: FDA-Public Use
  Company Number: 2006AP05700

PATIENT
  Age: 28948 Day
  Sex: Male

DRUGS (6)
  1. CRESTOR [Suspect]
     Indication: HYPERLIPIDAEMIA
     Route: 048
     Dates: start: 20061031, end: 20061114
  2. CONAN [Concomitant]
     Indication: HYPERTENSION
     Route: 048
  3. CORINAEL L [Concomitant]
     Indication: HYPERTENSION
     Route: 048
  4. PINDOLOL [Concomitant]
     Indication: HYPERTENSION
     Route: 048
  5. VANARL N [Concomitant]
     Indication: HYPERTENSION
     Route: 048
  6. KAIMAX [Concomitant]
     Indication: CONSTIPATION
     Route: 048

REACTIONS (3)
  - BENIGN PROSTATIC HYPERPLASIA [None]
  - DYSURIA [None]
  - URINARY TRACT INFECTION [None]
